FAERS Safety Report 21700808 (Version 1)
Quarter: 2022Q4

REPORT INFORMATION
  Report Type: Spontaneous
  Country: US (occurrence: US)
  Receive Date: 20221208
  Receipt Date: 20221208
  Transmission Date: 20230113
  Serious: No
  Sender: FDA-Public Use
  Company Number: US-ORGANON-O2211USA001399

PATIENT
  Sex: Female

DRUGS (2)
  1. NEXPLANON [Suspect]
     Active Substance: ETONOGESTREL
     Dosage: 1 IMPLANT OF 68 MILLIGRAM  FOR 3 YEARS IN LEFT ARM
     Route: 059
     Dates: start: 202204, end: 202210
  2. NEXPLANON [Suspect]
     Active Substance: ETONOGESTREL
     Dosage: 1 IMPLANT OF 68 MG EVERY 3 YEARS IN LEFT ARM
     Route: 059
     Dates: start: 202210

REACTIONS (5)
  - Intermenstrual bleeding [Recovered/Resolved]
  - Device kink [Recovered/Resolved]
  - Intermenstrual bleeding [Unknown]
  - Device kink [Not Recovered/Not Resolved]
  - Device placement issue [Not Recovered/Not Resolved]

NARRATIVE: CASE EVENT DATE: 20220901
